FAERS Safety Report 6413035-4 (Version None)
Quarter: 2009Q4

REPORT INFORMATION
  Report Type: 
  Country: None (occurrence: None)
  Receive Date: 20091023
  Receipt Date: 20091023
  Transmission Date: 20100525
  Serious: Yes (Life-Threatening)
  Sender: FDA-Public Use
  Company Number: None

PATIENT
  Age: 57 Year
  Sex: Female
  Weight: 85.7298 kg

DRUGS (1)
  1. NIASPAN [Suspect]
     Indication: BLOOD CHOLESTEROL INCREASED
     Dosage: 500 MG 1 PER NITE ORAL
     Route: 048
     Dates: start: 20091002

REACTIONS (10)
  - ASTHENIA [None]
  - BURNING SENSATION [None]
  - GAIT DISTURBANCE [None]
  - HYPOVENTILATION [None]
  - LOSS OF CONSCIOUSNESS [None]
  - OEDEMA PERIPHERAL [None]
  - PAIN [None]
  - SPEECH DISORDER [None]
  - SUNBURN [None]
  - SWELLING FACE [None]
